FAERS Safety Report 7496525-5 (Version None)
Quarter: 2011Q2

REPORT INFORMATION
  Report Type: 
  Country: None (occurrence: None)
  Receive Date: 20110523
  Receipt Date: 20110512
  Transmission Date: 20111010
  Serious: Yes (Other)
  Sender: FDA-Public Use
  Company Number: CH-ASTRAZENECA-2011SE14840

PATIENT
  Age: 24 Year
  Sex: Female

DRUGS (3)
  1. EUTHYROX [Concomitant]
     Indication: HYPOTHYROIDISM
  2. SEROQUEL XR [Suspect]
     Route: 048
     Dates: end: 20110201
  3. CITALOPRAM HYDROBROMIDE [Suspect]
     Dates: end: 20110201

REACTIONS (2)
  - DRUG EXPOSURE DURING PREGNANCY [None]
  - ABORTION INDUCED [None]
